FAERS Safety Report 7247154-X (Version None)
Quarter: 2011Q1

REPORT INFORMATION
  Report Type: 
  Country: None (occurrence: None)
  Receive Date: 20110127
  Receipt Date: 20101006
  Transmission Date: 20110831
  Serious: No
  Sender: FDA-Public Use
  Company Number: US-BAUSCH-2010BL005655

PATIENT
  Sex: Female

DRUGS (2)
  1. ALAWAY [Suspect]
     Indication: DRY EYE
     Route: 047
     Dates: start: 20100901
  2. ALAWAY [Suspect]
     Indication: OFF LABEL USE
     Route: 047
     Dates: start: 20100901

REACTIONS (4)
  - EYE DISORDER [None]
  - OCULAR HYPERAEMIA [None]
  - FOREIGN BODY SENSATION IN EYES [None]
  - EYE DISCHARGE [None]
